FAERS Safety Report 9130851 (Version 2)
Quarter: 2013Q1

REPORT INFORMATION
  Report Type: Spontaneous
  Country: JP (occurrence: JP)
  Receive Date: 20130301
  Receipt Date: 20130311
  Transmission Date: 20140127
  Serious: Yes (Life-Threatening, Hospitalization, Other)
  Sender: FDA-Public Use
  Company Number: JP-PFIZER INC-2013071855

PATIENT
  Age: 72 Year
  Sex: Male
  Weight: 52 kg

DRUGS (8)
  1. CELECOX [Suspect]
     Indication: PAIN
     Dosage: 100 MG, 2X/DAY
     Route: 048
     Dates: start: 20121225, end: 20130202
  2. PREDONINE [Concomitant]
     Dosage: UNK
  3. METHYCOBAL [Concomitant]
     Dosage: UNK
  4. UNISIA [Concomitant]
     Dosage: UNK
  5. ERYTHROCIN [Concomitant]
     Dosage: UNK
  6. LANSOPRAZOLE [Concomitant]
     Dosage: UNK
  7. LOXONIN [Concomitant]
     Dosage: UNK
  8. HIRUDOID [Concomitant]
     Dosage: UNK

REACTIONS (1)
  - Acute myocardial infarction [Recovered/Resolved]
